FAERS Safety Report 9941263 (Version 1)
Quarter: 2014Q1

REPORT INFORMATION
  Report Type: Report from Study
  Country: US (occurrence: US)
  Receive Date: 20140303
  Receipt Date: 20140303
  Transmission Date: 20141002
  Serious: No
  Sender: FDA-Public Use
  Company Number: US-ABBVIE-13P-163-1042753-00

PATIENT
  Age: 20 Year
  Sex: Female
  Weight: 56.75 kg

DRUGS (2)
  1. HUMIRA [Suspect]
     Indication: CROHN^S DISEASE
     Dosage: LOADING DOSE
     Dates: start: 20130103, end: 20130103
  2. HUMIRA [Suspect]
     Dates: start: 20130117

REACTIONS (7)
  - Influenza like illness [Recovered/Resolved]
  - Pyrexia [Recovered/Resolved]
  - Chills [Recovered/Resolved]
  - Abdominal distension [Recovered/Resolved]
  - Mood swings [Recovered/Resolved]
  - Swelling face [Recovered/Resolved]
  - Contusion [Not Recovered/Not Resolved]
